FAERS Safety Report 24617246 (Version 1)
Quarter: 2024Q4

REPORT INFORMATION
  Report Type: Spontaneous
  Country: US (occurrence: US)
  Receive Date: 20241114
  Receipt Date: 20241114
  Transmission Date: 20250115
  Serious: Yes (Other)
  Sender: AMGEN
  Company Number: US-AMGEN-USASP2024220890

PATIENT
  Sex: Female

DRUGS (2)
  1. REPATHA [Suspect]
     Active Substance: EVOLOCUMAB
     Indication: Product used for unknown indication
     Dosage: UNK
     Route: 065
  2. CEVIMELINE [Concomitant]
     Active Substance: CEVIMELINE

REACTIONS (8)
  - Anaphylactic reaction [Unknown]
  - Dystonia [Unknown]
  - Throat tightness [Unknown]
  - Decreased activity [Unknown]
  - Gait inability [Unknown]
  - Dyspnoea [Unknown]
  - Hypersensitivity [Unknown]
  - Back pain [Unknown]
